FAERS Safety Report 12562502 (Version 2)
Quarter: 2016Q3

REPORT INFORMATION
  Report Type: Spontaneous
  Country: JP (occurrence: JP)
  Receive Date: 20160715
  Receipt Date: 20160825
  Transmission Date: 20161109
  Serious: Yes (Death, Other)
  Sender: FDA-Public Use
  Company Number: JP-009507513-1606JPN009113

PATIENT
  Age: 90 Year
  Sex: Female

DRUGS (14)
  1. FUROSEMIDE. [Concomitant]
     Active Substance: FUROSEMIDE
     Dosage: 20 MG, QD
     Route: 048
  2. C CYSTEN [Concomitant]
     Active Substance: CARBOCYSTEINE
     Dosage: 1 G, QD; FORMULATION: FGR
     Route: 048
  3. DIART [Concomitant]
     Active Substance: AZOSEMIDE
     Dosage: 30 MG, QD
     Route: 048
  4. WYSTAL [Concomitant]
     Active Substance: CEFOPERAZONE SODIUM\SULBACTAM SODIUM
     Dosage: 1 G, BID
     Route: 041
  5. HALFDIGOXIN [Concomitant]
     Active Substance: DIGOXIN
     Dosage: 0.125 MG, QD
     Route: 048
  6. SPIRONOLACTONE. [Concomitant]
     Active Substance: SPIRONOLACTONE
     Dosage: 25 MG, BID
     Route: 048
  7. DOPRAM [Concomitant]
     Active Substance: DOXAPRAM HYDROCHLORIDE
     Dosage: 400 MG, QD
     Route: 041
  8. FUNGUARD (MICAFUNGIN SODIUM) [Concomitant]
     Dosage: 50 MG, QD
     Route: 041
  9. RABEPRAZOLE SODIUM. [Concomitant]
     Active Substance: RABEPRAZOLE SODIUM
     Dosage: 10 MG, QD
     Route: 048
  10. HEPAFLUSH [Concomitant]
     Active Substance: HEPARIN SODIUM
     Dosage: 5 MG, QD
     Route: 041
  11. TIENAM FOR INTRAVENOUS DRIP INFUSION 0.25G [Suspect]
     Active Substance: CILASTATIN SODIUM\IMIPENEM
     Dosage: 0.5 MG, BID
     Route: 051
     Dates: start: 201606, end: 201606
  12. ELIQUIS [Concomitant]
     Active Substance: APIXABAN
     Dosage: 2.5 MG, BID
     Route: 048
  13. DIGOSIN [Concomitant]
     Active Substance: DIGOXIN
     Dosage: 0.25 MG, QD
     Route: 041
  14. VERAPAMIL HYDROCHLORIDE. [Concomitant]
     Active Substance: VERAPAMIL HYDROCHLORIDE
     Dosage: 40 MG, BID
     Route: 048

REACTIONS (2)
  - Blood glucose increased [Unknown]
  - Respiratory failure [Fatal]

NARRATIVE: CASE EVENT DATE: 201606
